FAERS Safety Report 24891664 (Version 1)
Quarter: 2025Q1

REPORT INFORMATION
  Report Type: Spontaneous
  Country: US (occurrence: US)
  Receive Date: 20250127
  Receipt Date: 20250127
  Transmission Date: 20250409
  Serious: Yes (Life-Threatening, Other)
  Sender: PFIZER
  Company Number: US-PFIZER INC-PV202500009455

PATIENT
  Age: 43 Year
  Sex: Male

DRUGS (8)
  1. VANCOMYCIN HYDROCHLORIDE [Suspect]
     Active Substance: VANCOMYCIN HYDROCHLORIDE
     Indication: Endocarditis staphylococcal
     Dosage: 1.5 G, 1X/DAY (SINGLE DAILY DOSE)
  2. VANCOMYCIN HYDROCHLORIDE [Suspect]
     Active Substance: VANCOMYCIN HYDROCHLORIDE
     Dosage: 1.3 G, 1X/DAY
  3. VANCOMYCIN HYDROCHLORIDE [Suspect]
     Active Substance: VANCOMYCIN HYDROCHLORIDE
     Dosage: 2 G, 1X/DAY
  4. GENTAMICIN [Concomitant]
     Active Substance: GENTAMICIN
     Indication: Endocarditis bacterial
     Dosage: 120 MG, 2X/DAY (EVERY 12 HOURS)
  5. GENTAMICIN [Concomitant]
     Active Substance: GENTAMICIN
     Dosage: 100 MG, 2X/DAY
  6. GENTAMICIN [Concomitant]
     Active Substance: GENTAMICIN
     Dosage: 80 MG, 2X/DAY
  7. RIFAMPIN [Concomitant]
     Active Substance: RIFAMPIN
     Indication: Endocarditis bacterial
     Dosage: 900 MG, DAILY
     Route: 048
  8. HEPARIN [Concomitant]
     Active Substance: HEPARIN SODIUM
     Indication: Anticoagulant therapy

REACTIONS (2)
  - Drug ineffective [Recovered/Resolved]
  - Off label use [Unknown]
